FAERS Safety Report 20469536 (Version 1)
Quarter: 2022Q1

REPORT INFORMATION
  Report Type: Spontaneous
  Country: NL (occurrence: NL)
  Receive Date: 20220214
  Receipt Date: 20220214
  Transmission Date: 20220423
  Serious: Yes (Other)
  Sender: FDA-Public Use
  Company Number: None

PATIENT
  Sex: Male
  Weight: 103 kg

DRUGS (4)
  1. ATORVASTATIN [Suspect]
     Active Substance: ATORVASTATIN
     Indication: Hypercholesterolaemia
     Dosage: 20 MILLIGRAM DAILY; 1D1T, ATORVASTATINE TABLET 20MG / BRAND NAME NOT SPECIFIED
     Route: 065
     Dates: start: 20180926, end: 20190920
  2. AMLODIPINE\PERINDOPRIL [Suspect]
     Active Substance: AMLODIPINE\PERINDOPRIL
     Indication: Hypertension
     Dosage: 1 DOSAGE FORMS DAILY; 1D1T, PERINDOPRIL-ERB/AMLODIPINE TABLET 4/ 5MG / BRAND NAME NOT SPECIFIED, THE
     Dates: start: 20181003
  3. CLOPIDOGREL [Concomitant]
     Active Substance: CLOPIDOGREL BISULFATE
     Dosage: 75 MG, CLOPIDOGREL TABLET 75MG / BRAND NAME NOT SPECIFIED, THERAPY START AND END DATE: ASKU
  4. METFORMIN HYDROCHLORIDE [Concomitant]
     Active Substance: METFORMIN HYDROCHLORIDE
     Dosage: 500 MG, METFORMINE TABLET 500MG / BRAND NAME NOT SPECIFIED, THERAPY START AND END DATE: ASKU

REACTIONS (1)
  - Erectile dysfunction [Recovered/Resolved]
